FAERS Safety Report 6741231-5 (Version None)
Quarter: 2010Q2

REPORT INFORMATION
  Report Type: 
  Country: None (occurrence: None)
  Receive Date: 20100524
  Receipt Date: 20100507
  Transmission Date: 20101027
  Serious: Yes (Hospitalization)
  Sender: FDA-Public Use
  Company Number: 2010000077

PATIENT
  Age: 74 Year
  Sex: Male

DRUGS (14)
  1. ERLOTINIB (ERLOTINIB) (TABLET) (ERLOTINIB) [Suspect]
     Indication: MYELODYSPLASTIC SYNDROME
     Dosage: 150 MG QD ORAL
     Route: 048
     Dates: start: 20091216, end: 20091221
  2. ALBUTEROL [Concomitant]
  3. AMITRIPTYLINE HYDROCHLORIDE [Concomitant]
  4. VITAMIN B12 [Concomitant]
  5. EXJADE [Concomitant]
  6. CARDIZEM [Concomitant]
  7. ADVAIR DISKUS 100/50 [Concomitant]
  8. GABAPENTIN [Concomitant]
  9. MUCINEX [Concomitant]
  10. PREVACID [Concomitant]
  11. PROBIOTIC NOS [Concomitant]
  12. STOOL SOFTENER (DOCUSATE SODIUM) [Concomitant]
  13. COMPAZINE [Concomitant]
  14. TRAMADOL HCL [Concomitant]

REACTIONS (18)
  - ANAEMIA [None]
  - ATRIAL FIBRILLATION [None]
  - DECREASED APPETITE [None]
  - DEPRESSION [None]
  - DEVICE RELATED INFECTION [None]
  - DIARRHOEA [None]
  - DYSPNOEA [None]
  - FEBRILE NEUTROPENIA [None]
  - GASTROINTESTINAL HAEMORRHAGE [None]
  - LARGE INTESTINAL ULCER [None]
  - LETHARGY [None]
  - MENTAL STATUS CHANGES [None]
  - NEUTROPHIL COUNT DECREASED [None]
  - PAIN [None]
  - RED BLOOD CELL COUNT DECREASED [None]
  - RENAL FAILURE ACUTE [None]
  - SEPSIS [None]
  - WHITE BLOOD CELL COUNT DECREASED [None]
